FAERS Safety Report 4689321-5 (Version None)
Quarter: 2005Q2

REPORT INFORMATION
  Report Type: 
  Country: None (occurrence: None)
  Receive Date: 20050613
  Receipt Date: 20050607
  Transmission Date: 20051028
  Serious: Yes (Life-Threatening, Hospitalization, Disabling)
  Sender: FDA-Public Use
  Company Number: US-MERCK-0506USA01243

PATIENT
  Age: 67 Year
  Sex: Male

DRUGS (4)
  1. VIOXX [Suspect]
     Indication: ARTHRITIS
     Route: 048
     Dates: end: 20040909
  2. ATENOLOL [Concomitant]
     Route: 065
  3. COZAAR [Concomitant]
     Route: 065
  4. INSULIN [Concomitant]
     Indication: DIABETES MELLITUS
     Route: 065

REACTIONS (1)
  - CEREBROVASCULAR ACCIDENT [None]
